FAERS Safety Report 19707232 (Version 1)
Quarter: 2021Q3

REPORT INFORMATION
  Report Type: Spontaneous
  Country: US (occurrence: US)
  Receive Date: 20210816
  Receipt Date: 20210816
  Transmission Date: 20211014
  Serious: No
  Sender: FDA-Public Use
  Company Number: None

PATIENT
  Age: 42 Year
  Sex: Male

DRUGS (1)
  1. CISPLATIN. [Suspect]
     Active Substance: CISPLATIN
     Indication: SQUAMOUS CELL CARCINOMA
     Route: 042
     Dates: start: 20210204, end: 20210204

REACTIONS (9)
  - Inappropriate antidiuretic hormone secretion [None]
  - Hypophagia [None]
  - Nephropathy toxic [None]
  - Nausea [None]
  - Hyponatraemia [None]
  - Abdominal pain upper [None]
  - Acute kidney injury [None]
  - Renal tubular necrosis [None]
  - Vomiting [None]

NARRATIVE: CASE EVENT DATE: 20210211
